FAERS Safety Report 8421478-2 (Version None)
Quarter: 2012Q2

REPORT INFORMATION
  Report Type: 
  Country: None (occurrence: None)
  Receive Date: 20120608
  Receipt Date: 20120529
  Transmission Date: 20120825
  Serious: Yes (Hospitalization, Other)
  Sender: FDA-Public Use
  Company Number: CA-JNJFOC-20120520825

PATIENT
  Sex: Male
  Weight: 98 kg

DRUGS (1)
  1. REMICADE [Suspect]
     Indication: CROHN'S DISEASE
     Dosage: MAINT # 16
     Route: 042

REACTIONS (6)
  - SMALL INTESTINE ULCER [None]
  - ABSCESS [None]
  - COLECTOMY [None]
  - PNEUMONIA [None]
  - VOMITING [None]
  - SUTURE RUPTURE [None]
